FAERS Safety Report 7984250-3 (Version None)
Quarter: 2011Q4

REPORT INFORMATION
  Report Type: 
  Country: None (occurrence: None)
  Receive Date: 20111214
  Receipt Date: 20111206
  Transmission Date: 20120403
  Serious: Yes (Other)
  Sender: FDA-Public Use
  Company Number: IMP_05476_2011

PATIENT
  Sex: Female

DRUGS (2)
  1. BUPROPION HCL [Suspect]
     Indication: PRODUCT USED FOR UNKNOWN INDICATION
  2. WELLBUTRIN XL [Concomitant]

REACTIONS (10)
  - ANGER [None]
  - DEPRESSED MOOD [None]
  - CRYING [None]
  - FEELING ABNORMAL [None]
  - IRRITABILITY [None]
  - SELF-INJURIOUS IDEATION [None]
  - INCREASED APPETITE [None]
  - MOOD ALTERED [None]
  - MIGRAINE [None]
  - VOMITING [None]
